FAERS Safety Report 5289066-7 (Version None)
Quarter: 2007Q1

REPORT INFORMATION
  Report Type: 
  Country: None (occurrence: None)
  Receive Date: 20070116
  Receipt Date: 20060313
  Transmission Date: 20070707
  Serious: No
  Sender: FDA-Public Use
  Company Number: FEI2004-0707

PATIENT
  Age: 45 Year
  Sex: Female

DRUGS (1)
  1. INTRAUTERINE COPPER CONTRACEPTIVE [Suspect]
     Indication: CONTRACEPTION
     Dosage: INTRA-UTERINE
     Route: 015
     Dates: start: 19990101, end: 20040206

REACTIONS (3)
  - DYSMENORRHOEA [None]
  - IUCD COMPLICATION [None]
  - MENORRHAGIA [None]
